FAERS Safety Report 5357746-0 (Version None)
Quarter: 2007Q2

REPORT INFORMATION
  Report Type: 
  Country: None (occurrence: None)
  Receive Date: 20070614
  Receipt Date: 20070604
  Transmission Date: 20071010
  Serious: Yes (Other)
  Sender: FDA-Public Use
  Company Number: GB-PFIZER INC-2007043102

PATIENT
  Age: 52 Year
  Sex: Female
  Weight: 58 kg

DRUGS (2)
  1. CHAMPIX [Suspect]
     Indication: SMOKING CESSATION THERAPY
     Route: 048
     Dates: start: 20070226, end: 20070430
  2. AMLODIPINE [Interacting]
     Indication: ESSENTIAL HYPERTENSION
     Route: 048
     Dates: start: 20020206, end: 20070101

REACTIONS (6)
  - DRUG INTERACTION [None]
  - GASTROINTESTINAL MOTILITY DISORDER [None]
  - JOINT SWELLING [None]
  - LIVER FUNCTION TEST ABNORMAL [None]
  - PAIN [None]
  - RENAL IMPAIRMENT [None]
